FAERS Safety Report 5335710-5 (Version None)
Quarter: 2007Q2

REPORT INFORMATION
  Report Type: 
  Country: None (occurrence: None)
  Receive Date: 20070322
  Receipt Date: 20070118
  Transmission Date: 20071010
  Serious: No
  Sender: FDA-Public Use
  Company Number: 2007US000163

PATIENT
  Age: 66 Year
  Sex: Female

DRUGS (2)
  1. VESICARE [Suspect]
     Indication: HYPERTONIC BLADDER
     Dosage: 5 MG, UNK, ORAL
     Route: 048
     Dates: start: 20050601
  2. PREMARIN [Concomitant]

REACTIONS (1)
  - CONSTIPATION [None]
